FAERS Safety Report 6172801-3 (Version None)
Quarter: 2009Q2

REPORT INFORMATION
  Report Type: 
  Country: None (occurrence: None)
  Receive Date: 20090430
  Receipt Date: 20090428
  Transmission Date: 20091009
  Serious: Yes (Life-Threatening, Hospitalization)
  Sender: FDA-Public Use
  Company Number: FR-BRISTOL-MYERS SQUIBB COMPANY-14603849

PATIENT
  Age: 29 Year
  Sex: Female

DRUGS (4)
  1. BLEOMYCIN SULFATE [Suspect]
     Indication: HODGKIN'S DISEASE
     Dosage: 10 MG/M2 PER DAY. STARTED ON APR06
     Route: 042
     Dates: start: 20070101, end: 20070101
  2. DOXORUBICIN HCL [Suspect]
     Indication: HODGKIN'S DISEASE
     Dosage: 30MG/M2/DAY; STARTED ON APR06
     Route: 042
     Dates: start: 20070101, end: 20070101
  3. ONCOVIN [Suspect]
     Indication: HODGKIN'S DISEASE
     Dosage: STARTED ON APR06; 6MG/M2/DAY
     Route: 042
     Dates: start: 20070101, end: 20070101
  4. DETICENE [Suspect]
     Indication: HODGKIN'S DISEASE
     Dosage: 200MG/M2/DAY; STARTED ON APR06;
     Route: 042
     Dates: start: 20070101, end: 20070101

REACTIONS (1)
  - ACUTE MYELOID LEUKAEMIA [None]
